FAERS Safety Report 6710178-2 (Version None)
Quarter: 2010Q2

REPORT INFORMATION
  Report Type: 
  Country: None (occurrence: None)
  Receive Date: 20100504
  Receipt Date: 20100422
  Transmission Date: 20101027
  Serious: Yes (Other)
  Sender: FDA-Public Use
  Company Number: GB-WATSON-2010-05761

PATIENT
  Age: 64 Year
  Sex: Male

DRUGS (12)
  1. DICLOFENAC (WATSON LABORATORIES) [Suspect]
     Indication: ARTHRALGIA
     Dosage: UNK
  2. DOXAZOSIN (WATSON LABORATORIES) [Suspect]
     Indication: ATRIAL FIBRILLATION
     Dosage: UNK
     Route: 065
  3. DOXAZOSIN (WATSON LABORATORIES) [Suspect]
     Indication: HYPERTENSION
  4. ATENOLOL [Suspect]
     Indication: ATRIAL FIBRILLATION
     Dosage: UNK
  5. ATENOLOL [Suspect]
     Indication: HYPERTENSION
  6. CODRIX (WATSON LABORATORIES) [Suspect]
     Indication: ARTHRALGIA
     Dosage: UNK
  7. GABAPENTIN [Suspect]
     Indication: ARTHRALGIA
     Dosage: UNK
     Route: 065
  8. LISINOPRIL [Suspect]
     Indication: ATRIAL FIBRILLATION
     Dosage: UNK
  9. LISINOPRIL [Suspect]
     Indication: HYPERTENSION
  10. MORPHINE SULFATE INJ [Suspect]
     Indication: ARTHRALGIA
     Dosage: UNK
  11. BENDROFLUAZIDE [Suspect]
     Indication: ATRIAL FIBRILLATION
     Dosage: UNK
  12. BENDROFLUAZIDE [Suspect]
     Indication: HYPERTENSION

REACTIONS (7)
  - ASCITES [None]
  - CARDIAC FAILURE [None]
  - CONSTIPATION [None]
  - DEHYDRATION [None]
  - DRUG INEFFECTIVE [None]
  - LYMPHOEDEMA [None]
  - PLEURAL EFFUSION [None]
